FAERS Safety Report 8252431-X (Version None)
Quarter: 2012Q2

REPORT INFORMATION
  Report Type: 
  Country: None (occurrence: None)
  Receive Date: 20120402
  Receipt Date: 20110628
  Transmission Date: 20120825
  Serious: No
  Sender: FDA-Public Use
  Company Number: US-ABBOTT-11P-163-0834723-00

PATIENT
  Sex: Male
  Weight: 115.77 kg

DRUGS (3)
  1. UNKNOWN CONTAST DYE [Suspect]
     Indication: COMPUTERISED TOMOGRAM
     Dates: start: 20110623, end: 20110623
  2. ANDROGEL [Suspect]
     Indication: BLOOD TESTOSTERONE DECREASED
     Dates: start: 20110401, end: 20110628
  3. UNKNOWN CONTAST DYE [Suspect]
     Dates: start: 20110627, end: 20110627

REACTIONS (4)
  - PAPULE [None]
  - RASH [None]
  - HYPERHIDROSIS [None]
  - PRURITUS [None]
